FAERS Safety Report 4452027-1 (Version None)
Quarter: 2004Q3

REPORT INFORMATION
  Report Type: 
  Country: None (occurrence: None)
  Receive Date: 20040913
  Receipt Date: 20040615
  Transmission Date: 20050211
  Serious: No
  Sender: FDA-Public Use
  Company Number: 2004-BP-04705BP(0)

PATIENT
  Age: 61 Year
  Sex: Female

DRUGS (7)
  1. SPIRIVA [Suspect]
     Indication: ASTHMA
     Dosage: 18 MCG (18 MCG), IH
     Dates: start: 20040601
  2. ADVAIR (SERETIDE MITE) [Concomitant]
  3. SINGULAIR [Concomitant]
  4. THEOPHYLLINE [Concomitant]
  5. NORVASC [Concomitant]
  6. HUMALOG [Concomitant]
  7. HUMULIN N [Concomitant]

REACTIONS (2)
  - CATARACT [None]
  - VISION BLURRED [None]
